FAERS Safety Report 15547680 (Version 1)
Quarter: 2018Q4

REPORT INFORMATION
  Report Type: Spontaneous
  Country: GR (occurrence: GR)
  Receive Date: 20181024
  Receipt Date: 20181024
  Transmission Date: 20190205
  Serious: Yes (Other)
  Sender: FDA-Public Use
  Company Number: GR-009507513-1810GRC008744

PATIENT
  Sex: Male

DRUGS (2)
  1. JANUMET [Suspect]
     Active Substance: METFORMIN HYDROCHLORIDE\SITAGLIPTIN PHOSPHATE
     Indication: BLOOD GLUCOSE
     Dosage: (50+1000) MG TABLET, DOSING SCHEME: MORNING/NIGHT)
     Route: 048
  2. DIAMICRON [Concomitant]
     Active Substance: GLICLAZIDE
     Dosage: HALF OF THE TABLET, WHEN REMEMBERS
     Route: 048

REACTIONS (2)
  - Prostate cancer [Unknown]
  - Blood glucose increased [Unknown]
